FAERS Safety Report 12663297 (Version 3)
Quarter: 2016Q4

REPORT INFORMATION
  Report Type: Report from Study
  Country: IE (occurrence: IE)
  Receive Date: 20160818
  Receipt Date: 20161227
  Transmission Date: 20170207
  Serious: Yes (Other)
  Sender: FDA-Public Use
  Company Number: PHFR2016IE006642

PATIENT
  Age: 57 Year
  Sex: Female

DRUGS (8)
  1. AFFEX [Concomitant]
     Indication: DEPRESSION
     Dosage: 20 MG, QD
     Route: 048
     Dates: start: 20121114
  2. LIPITOR [Concomitant]
     Active Substance: ATORVASTATIN CALCIUM
     Indication: HYPERLIPIDAEMIA
     Dosage: 20 MG, QD
     Route: 048
  3. DOXAFIN [Concomitant]
     Indication: HYPERTENSION
     Dosage: 4 MG, BID
     Route: 048
  4. ESOMEPRAZOLE [Concomitant]
     Active Substance: ESOMEPRAZOLE
     Indication: GASTRIC DISORDER
     Dosage: 40 MG, QD
     Route: 048
     Dates: start: 20160518
  5. BECLAZONE [Concomitant]
     Indication: RESPIRATORY DISORDER
     Dosage: 2 DF, BID
     Route: 055
  6. INNOZIDE [Concomitant]
     Indication: HYPERTENSION
     Dosage: 20 MG, QD
     Route: 048
  7. ULTIBRO BREEZHALER [Suspect]
     Active Substance: GLYCOPYRRONIUM\INDACATEROL
     Indication: RESPIRATORY DISORDER
     Dosage: 1 DF, UNK
     Route: 055
  8. SALMOL [Concomitant]
     Indication: RESPIRATORY DISORDER
     Dosage: 2 DF, QD
     Route: 055

REACTIONS (3)
  - Chest pain [Unknown]
  - Product use issue [Unknown]
  - Arthralgia [Unknown]

NARRATIVE: CASE EVENT DATE: 20150809
